FAERS Safety Report 10030643 (Version 1)
Quarter: 2014Q1

REPORT INFORMATION
  Report Type: Spontaneous
  Country: US (occurrence: US)
  Receive Date: 20140323
  Receipt Date: 20140323
  Transmission Date: 20141002
  Serious: No
  Sender: FDA-Public Use
  Company Number: US-ALLERGAN-1319428US

PATIENT
  Age: 58 Year
  Sex: Female

DRUGS (4)
  1. LATISSE 0.03% [Suspect]
     Indication: EYELASH THICKENING
     Dosage: 1 GTT, QHS
     Route: 061
     Dates: start: 20131208
  2. BLOOD PRESSURE MEDICINE NOS [Concomitant]
     Indication: HYPERTENSION
     Dosage: UNK
  3. THYROID MEDICINE NOS [Concomitant]
     Indication: HYPOTHYROIDISM
     Dosage: UNK
  4. CHOLESTEROL MEDICINE NOS [Concomitant]
     Indication: BLOOD CHOLESTEROL INCREASED
     Dosage: UNK

REACTIONS (4)
  - Wrong technique in drug usage process [Unknown]
  - Wrong technique in drug usage process [Unknown]
  - Incorrect dose administered [Unknown]
  - Scleral hyperaemia [Not Recovered/Not Resolved]
